FAERS Safety Report 7490068-0 (Version None)
Quarter: 2011Q2

REPORT INFORMATION
  Report Type: 
  Country: None (occurrence: None)
  Receive Date: 20110519
  Receipt Date: 20110404
  Transmission Date: 20111010
  Serious: Yes (Other)
  Sender: FDA-Public Use
  Company Number: US-BAYER-2011-019101

PATIENT
  Age: 20 Year
  Sex: Male

DRUGS (3)
  1. TOPAMAX [Concomitant]
  2. INTERFERON BETA-1B [Suspect]
     Indication: RELAPSING-REMITTING MULTIPLE SCLEROSIS
     Dosage: 8 MIU, QOD
     Dates: start: 20100219
  3. ANTI-ACNE PREPARATIONS [Concomitant]
     Indication: ACNE

REACTIONS (6)
  - ABDOMINAL PAIN [None]
  - ALOPECIA [None]
  - DEPRESSION [None]
  - PELVIC PAIN [None]
  - ABDOMINAL HERNIA REPAIR [None]
  - PROCEDURAL COMPLICATION [None]
